FAERS Safety Report 9360447 (Version 4)
Quarter: 2013Q3

REPORT INFORMATION
  Report Type: Spontaneous
  Country: DE (occurrence: DE)
  Receive Date: 20130621
  Receipt Date: 20130812
  Transmission Date: 20140515
  Serious: Yes (Hospitalization)
  Sender: FDA-Public Use
  Company Number: DE-JNJFOC-20121008730

PATIENT
  Age: 38 Year
  Sex: Female

DRUGS (7)
  1. XEPLION [Suspect]
     Indication: SCHIZOPHRENIA, PARANOID TYPE
     Route: 030
     Dates: start: 20121015
  2. XEPLION [Suspect]
     Indication: SCHIZOPHRENIA, PARANOID TYPE
     Route: 030
     Dates: start: 20121010, end: 20121010
  3. XEPLION [Suspect]
     Indication: SCHIZOPHRENIA, PARANOID TYPE
     Route: 030
     Dates: start: 20121004, end: 20121004
  4. THYRONAJOD [Concomitant]
     Route: 065
  5. TAVOR [Concomitant]
     Route: 065
  6. ZYPREXA [Concomitant]
     Route: 065
     Dates: start: 20121122
  7. SYCREST [Concomitant]
     Route: 065
     Dates: start: 20121114

REACTIONS (2)
  - Psychotic disorder [Unknown]
  - Inappropriate schedule of drug administration [Unknown]
